FAERS Safety Report 8035785-9 (Version None)
Quarter: 2012Q1

REPORT INFORMATION
  Report Type: 
  Country: None (occurrence: None)
  Receive Date: 20120106
  Receipt Date: 20111229
  Transmission Date: 20120608
  Serious: Yes (Other)
  Sender: FDA-Public Use
  Company Number: 2012SP000027

PATIENT
  Sex: Female

DRUGS (3)
  1. RIBAVIRIN [Suspect]
     Indication: HEPATITIS C
     Dosage: 5;3 DF, QD
     Dates: end: 20110801
  2. RIBAVIRIN [Suspect]
     Indication: HEPATITIS C
     Dosage: 5;3 DF, QD
     Dates: start: 20100901
  3. PEGASYS [Suspect]
     Indication: HEPATITIS C
     Dates: start: 20100901, end: 20110801

REACTIONS (3)
  - RASH [None]
  - RED BLOOD CELL COUNT DECREASED [None]
  - SYNCOPE [None]
